FAERS Safety Report 7354798-3 (Version None)
Quarter: 2011Q1

REPORT INFORMATION
  Report Type: 
  Country: None (occurrence: None)
  Receive Date: 20110316
  Receipt Date: 20100623
  Transmission Date: 20110831
  Serious: No
  Sender: FDA-Public Use
  Company Number: US-KINGPHARMUSA00001-K201000790

PATIENT
  Sex: Male
  Weight: 98.866 kg

DRUGS (6)
  1. TOPROL-XL [Suspect]
     Indication: HYPERTENSION
     Dosage: 1 DF, BID
     Route: 048
     Dates: end: 20100401
  2. GLUCOPHAGE [Concomitant]
     Indication: TYPE 2 DIABETES MELLITUS
     Dosage: 1 DF, BID
     Route: 048
  3. ALTACE [Suspect]
     Indication: PROPHYLAXIS
     Dosage: 5 MG, QD
     Route: 048
     Dates: end: 20100401
  4. ALTACE [Suspect]
     Dosage: 5 MG, BID
     Route: 048
     Dates: start: 20100401
  5. TOPROL-XL [Suspect]
     Dosage: 2 DF, BID
     Route: 048
     Dates: start: 20100401
  6. GLIPIZIDE [Concomitant]
     Indication: TYPE 2 DIABETES MELLITUS
     Dosage: 1 DF, BID
     Route: 048

REACTIONS (1)
  - BLOOD PRESSURE INCREASED [None]
